FAERS Safety Report 7805300-0 (Version None)
Quarter: 2011Q4

REPORT INFORMATION
  Report Type: 
  Country: None (occurrence: None)
  Receive Date: 20111010
  Receipt Date: 20111005
  Transmission Date: 20120403
  Serious: Yes (Other)
  Sender: FDA-Public Use
  Company Number: US-PFIZER INC-2011238211

PATIENT
  Sex: Female
  Weight: 77.1 kg

DRUGS (1)
  1. XALATAN [Suspect]
     Indication: GLAUCOMA
     Dosage: 1 GTT IN EACH EYE
     Route: 047
     Dates: start: 20030101

REACTIONS (2)
  - CATARACT [None]
  - VISION BLURRED [None]
